FAERS Safety Report 8579120-6 (Version None)
Quarter: 2012Q3

REPORT INFORMATION
  Report Type: 
  Country: None (occurrence: None)
  Receive Date: 20120808
  Receipt Date: 20120725
  Transmission Date: 20120928
  Serious: Yes (Hospitalization)
  Sender: FDA-Public Use
  Company Number: US-ROCHE-1093140

PATIENT
  Sex: Female

DRUGS (5)
  1. KLONOPIN [Suspect]
     Indication: MANIA
     Dosage: DRUG USE ON AND OFF FOR 21 YEARS, UPPED FROM 1.5MG TO 3MG DAILY
     Route: 065
  2. RESTORIL [Concomitant]
     Dosage: 30 TO 45MG
  3. KLONOPIN [Suspect]
     Indication: BIPOLAR DISORDER
     Route: 065
  4. KLONOPIN [Suspect]
     Route: 065
  5. DEPAKOTE [Suspect]
     Indication: PRODUCT USED FOR UNKNOWN INDICATION
     Route: 065

REACTIONS (18)
  - DEPRESSION [None]
  - FEELING ABNORMAL [None]
  - HEADACHE [None]
  - PSYCHOMOTOR HYPERACTIVITY [None]
  - PANIC ATTACK [None]
  - ANGER [None]
  - MALAISE [None]
  - HOSPITALISATION [None]
  - ANXIETY [None]
  - FATIGUE [None]
  - AGITATION [None]
  - INSOMNIA [None]
  - FEELING JITTERY [None]
  - MANIA [None]
  - RESTLESSNESS [None]
  - MOTOR DYSFUNCTION [None]
  - IRRITABILITY [None]
  - TACHYPHRENIA [None]
